FAERS Safety Report 9742581 (Version 1)
Quarter: 2013Q4

REPORT INFORMATION
  Report Type: Spontaneous
  Country: FR (occurrence: FR)
  Receive Date: 20131210
  Receipt Date: 20131210
  Transmission Date: 20140711
  Serious: Yes (Hospitalization)
  Sender: FDA-Public Use
  Company Number: PHHY2013FR142225

PATIENT
  Age: 50 Year
  Sex: Male

DRUGS (9)
  1. PACLITAXEL EBEWE [Suspect]
     Indication: LUNG ADENOCARCINOMA
     Dosage: 128 MG, PRN
     Route: 042
     Dates: start: 20100716, end: 20100730
  2. CARBOPLATIN [Concomitant]
     Indication: LUNG ADENOCARCINOMA
     Route: 065
  3. BEVACIZUMAB [Concomitant]
     Indication: LUNG ADENOCARCINOMA
     Route: 065
  4. ESIDREX [Concomitant]
     Indication: PRODUCT USED FOR UNKNOWN INDICATION
     Route: 065
  5. RASILEZ [Concomitant]
     Indication: PRODUCT USED FOR UNKNOWN INDICATION
     Route: 065
  6. FOLIC ACID [Concomitant]
     Indication: PRODUCT USED FOR UNKNOWN INDICATION
     Route: 065
  7. SOLUPRED [Concomitant]
     Indication: PRODUCT USED FOR UNKNOWN INDICATION
     Route: 065
  8. PRIMPERAN [Concomitant]
     Indication: PRODUCT USED FOR UNKNOWN INDICATION
     Route: 065
  9. EMEND [Concomitant]
     Indication: PRODUCT USED FOR UNKNOWN INDICATION
     Route: 065

REACTIONS (7)
  - Sense of oppression [Recovered/Resolved]
  - Limb discomfort [Recovered/Resolved]
  - Dysgeusia [Recovered/Resolved]
  - Hypotension [Recovered/Resolved]
  - Hot flush [Recovered/Resolved]
  - Vomiting [Recovered/Resolved]
  - Dyspnoea [Recovered/Resolved]
